FAERS Safety Report 6842851-X (Version None)
Quarter: 2010Q3

REPORT INFORMATION
  Report Type: 
  Country: None (occurrence: None)
  Receive Date: 20100709
  Receipt Date: 20100624
  Transmission Date: 20110219
  Serious: Yes (Other)
  Sender: FDA-Public Use
  Company Number: 1000014902

PATIENT
  Age: 64 Year
  Sex: Male

DRUGS (8)
  1. MEMANTINE HCL [Suspect]
     Indication: CEREBRAL ATROPHY
     Dosage: 20 MG (20 MG, 1 IN 1 D), ORAL
     Route: 048
     Dates: start: 20100301
  2. BACLOFEN [Concomitant]
  3. TIAPRIDAL [Concomitant]
  4. MYDOCALM [Concomitant]
  5. TEBOKAN [Concomitant]
  6. PIRABENE [Concomitant]
  7. THIOCTACID [Concomitant]
  8. CITALEC [Concomitant]

REACTIONS (11)
  - AGGRESSION [None]
  - ANGER [None]
  - ANXIETY DISORDER [None]
  - BACK PAIN [None]
  - COMMUNICATION DISORDER [None]
  - CRYING [None]
  - DYSKINESIA [None]
  - HYPERTONIA [None]
  - MOVEMENT DISORDER [None]
  - PAIN IN EXTREMITY [None]
  - SOCIAL PHOBIA [None]
